FAERS Safety Report 15053727 (Version 1)
Quarter: 2018Q2

REPORT INFORMATION
  Report Type: Report from Study
  Country: US (occurrence: US)
  Receive Date: 20180622
  Receipt Date: 20180622
  Transmission Date: 20180711
  Serious: No
  Sender: FDA-Public Use
  Company Number: US-AMGEN-USASL2016085273

PATIENT
  Age: 49 Year
  Sex: Female

DRUGS (5)
  1. NPLATE [Suspect]
     Active Substance: ROMIPLOSTIM
     Indication: IMMUNE THROMBOCYTOPENIC PURPURA
     Dosage: 1 MUG, UNK
     Route: 065
     Dates: start: 20160610
  2. TOPIRAMATE. [Concomitant]
     Active Substance: TOPIRAMATE
     Dosage: 50 MG IN MORINING AND 100 MG AT NIGHT
  3. MONTELUKAST [Concomitant]
     Active Substance: MONTELUKAST SODIUM
     Indication: HYPERSENSITIVITY
     Dosage: UNK
  4. TOVIAZ [Concomitant]
     Active Substance: FESOTERODINE FUMARATE
     Dosage: 8 MG, IN THE EVENING
  5. ZYRTEC [Concomitant]
     Active Substance: CETIRIZINE HYDROCHLORIDE
     Dosage: UNK AT NIGHT

REACTIONS (6)
  - Platelet count abnormal [Unknown]
  - Abdominal pain upper [Unknown]
  - Migraine [Recovered/Resolved]
  - Drug effect incomplete [Unknown]
  - Therapeutic response decreased [Unknown]
  - Abdominal discomfort [Recovered/Resolved]
